FAERS Safety Report 8463147-9 (Version None)
Quarter: 2012Q2

REPORT INFORMATION
  Report Type: 
  Country: None (occurrence: None)
  Receive Date: 20120323
  Receipt Date: 20110922
  Transmission Date: 20120825
  Serious: Yes (Hospitalization, Other)
  Sender: FDA-Public Use
  Company Number: 163-21880-11092932

PATIENT
  Age: 89 Year
  Sex: Male

DRUGS (11)
  1. REVLIMID [Suspect]
     Indication: MULTIPLE MYELOMA
     Dosage: 7.5 MG, 1 IN 2 D, PO
     Route: 048
     Dates: start: 20110526, end: 20110701
  2. LOSARTAN POTASSIUM [Concomitant]
  3. GEMFIBROZIL [Concomitant]
  4. CALCIUM PLUS VITAMIN D (VITACAL) [Concomitant]
  5. OMEPRAZOLE [Concomitant]
  6. FLUTICASONE PROPIONATE [Concomitant]
  7. DEXAMETHASONE [Concomitant]
  8. ASPIRIN [Concomitant]
  9. PROCRIT [Concomitant]
  10. INSULIN [Concomitant]
  11. NIFEDIPINE [Concomitant]

REACTIONS (2)
  - PNEUMONIA [None]
  - INTERSTITIAL LUNG DISEASE [None]
